FAERS Safety Report 11760642 (Version 1)
Quarter: 2015Q4

REPORT INFORMATION
  Report Type: Spontaneous
  Country: TR (occurrence: TR)
  Receive Date: 20151120
  Receipt Date: 20151120
  Transmission Date: 20160304
  Serious: Yes (Hospitalization)
  Sender: FDA-Public Use
  Company Number: TR-MYLANLABS-2015M1040571

PATIENT

DRUGS (1)
  1. WARFARIN [Suspect]
     Active Substance: WARFARIN
     Indication: PRODUCT USED FOR UNKNOWN INDICATION
     Dosage: 5 MG FOR THE PAST MONTH
     Route: 065

REACTIONS (3)
  - Intestinal obstruction [Recovered/Resolved]
  - Intestinal haematoma [Recovering/Resolving]
  - Overdose [Unknown]
